FAERS Safety Report 4849807-7 (Version None)
Quarter: 2005Q4

REPORT INFORMATION
  Report Type: 
  Country: None (occurrence: None)
  Receive Date: 20051209
  Receipt Date: 20051005
  Transmission Date: 20060501
  Serious: Yes (Death, Hospitalization)
  Sender: FDA-Public Use
  Company Number: US-MERCK-0510USA04602

PATIENT
  Age: 54 Year
  Sex: Male
  Weight: 118 kg

DRUGS (5)
  1. VIOXX [Suspect]
     Indication: BACK PAIN
     Route: 048
     Dates: start: 20000101, end: 20040806
  2. INDOCIN [Concomitant]
     Route: 065
  3. MOTRIN [Concomitant]
     Route: 065
  4. BUSPAR [Concomitant]
     Route: 065
  5. PRINIVIL [Concomitant]
     Route: 048

REACTIONS (6)
  - ACUTE MYOCARDIAL INFARCTION [None]
  - ADVERSE EVENT [None]
  - CARDIOVASCULAR DISORDER [None]
  - CORONARY ARTERY DISEASE [None]
  - DYSPEPSIA [None]
  - GASTROOESOPHAGEAL REFLUX DISEASE [None]
